FAERS Safety Report 21548221 (Version 1)
Quarter: 2022Q4

REPORT INFORMATION
  Report Type: Spontaneous
  Country: CN (occurrence: CN)
  Receive Date: 20221103
  Receipt Date: 20221103
  Transmission Date: 20230112
  Serious: Yes (Other)
  Sender: FDA-Public Use
  Company Number: CN-PFIZER INC-PV202200092732

PATIENT
  Age: 76 Year
  Sex: Male
  Weight: 76 kg

DRUGS (3)
  1. DALTEPARIN SODIUM [Suspect]
     Active Substance: DALTEPARIN SODIUM
     Indication: Venous thrombosis limb
     Dosage: 5000 IU, 2X/DAY
     Route: 058
     Dates: start: 20221004, end: 20221011
  2. HERBALS [Suspect]
     Active Substance: HERBALS
     Indication: Venous thrombosis limb
     Dosage: 20 ML, 1X/DAY
     Route: 041
     Dates: start: 20221004, end: 20221011
  3. SODIUM CHLORIDE [Concomitant]
     Active Substance: SODIUM CHLORIDE
     Dosage: 250 ML, 1X/DAY
     Route: 041

REACTIONS (1)
  - Hepatic function abnormal [Recovering/Resolving]

NARRATIVE: CASE EVENT DATE: 20221011
